FAERS Safety Report 5818381-0 (Version None)
Quarter: 2008Q3

REPORT INFORMATION
  Report Type: 
  Country: None (occurrence: None)
  Receive Date: 20080718
  Receipt Date: 20080708
  Transmission Date: 20090109
  Serious: Yes (Death)
  Sender: FDA-Public Use
  Company Number: GXKR2007GB02135

PATIENT
  Age: 79 Year
  Sex: Male
  Weight: 100 kg

DRUGS (8)
  1. FLUOXETINE [Suspect]
     Indication: DEPRESSION
     Dosage: 30 MG, QD, ORAL
     Route: 048
     Dates: start: 20060808
  2. METHOTREXATE [Suspect]
     Indication: SERONEGATIVE ARTHRITIS
     Dosage: 5 MG, QW
     Dates: start: 20000710
  3. CO-DYDRAMOL        (DIHYDROCODEINE BITARTRATE, PARACETAMOL) [Concomitant]
  4. DIGOXIN [Concomitant]
  5. FOLIC ACID [Concomitant]
  6. PRAZOSIN GITS [Concomitant]
  7. SULFASALAZINE [Concomitant]
  8. WARFARIN SODIUM [Concomitant]

REACTIONS (2)
  - LEFT VENTRICULAR FAILURE [None]
  - PNEUMONIA [None]
